FAERS Safety Report 11541046 (Version 1)
Quarter: 2015Q3

REPORT INFORMATION
  Report Type: Spontaneous
  Country: US (occurrence: US)
  Receive Date: 20150923
  Receipt Date: 20150923
  Transmission Date: 20151125
  Serious: No
  Sender: FDA-Public Use
  Company Number: US-ELI_LILLY_AND_COMPANY-US201509001532

PATIENT
  Age: 51 Year
  Sex: Female
  Weight: 86 kg

DRUGS (1)
  1. CYMBALTA [Suspect]
     Active Substance: DULOXETINE HYDROCHLORIDE
     Indication: FIBROMYALGIA
     Dosage: 60 MG, QD
     Route: 048
     Dates: start: 20101106, end: 201011

REACTIONS (7)
  - Abnormal dreams [Unknown]
  - Headache [Unknown]
  - Nausea [Unknown]
  - Dizziness [Unknown]
  - Insomnia [Unknown]
  - Depression [Unknown]
  - Feeling abnormal [Unknown]
